FAERS Safety Report 17756687 (Version 1)
Quarter: 2020Q2

REPORT INFORMATION
  Report Type: Spontaneous
  Country: LT (occurrence: LT)
  Receive Date: 20200507
  Receipt Date: 20200507
  Transmission Date: 20200714
  Serious: Yes (Other)
  Sender: FDA-Public Use
  Company Number: LT-MYLANLABS-2020M1045325

PATIENT
  Age: 54 Year
  Sex: Female

DRUGS (4)
  1. FLUTICASONE PROPIONATE/SALMETEROL XINAFOATE [Suspect]
     Active Substance: FLUTICASONE PROPIONATE\SALMETEROL XINAFOATE
     Indication: ASTHMA
     Dosage: 2 DOSAGE FORM, QD
  2. BUDESONIDE. [Suspect]
     Active Substance: BUDESONIDE
     Indication: ASTHMA
     Dosage: 800 MICROGRAM, QD (400 UG, BID)
  3. UMECLIDINIUM /07591602/ [Suspect]
     Active Substance: UMECLIDINIUM BROMIDE
     Indication: ASTHMA
     Dosage: 55 MICROGRAM, QD (55 UG, 1D)
  4. MEPOLIZUMAB [Suspect]
     Active Substance: MEPOLIZUMAB
     Indication: ASTHMA
     Dosage: 100 MILLIGRAM (100 MG, Z, MONTHLY)
     Route: 042

REACTIONS (4)
  - Asthma [Unknown]
  - Bronchiectasis [Unknown]
  - Dyspnoea [Unknown]
  - Cough [Unknown]
